FAERS Safety Report 7833260-5 (Version None)
Quarter: 2011Q4

REPORT INFORMATION
  Report Type: 
  Country: None (occurrence: None)
  Receive Date: 20111024
  Receipt Date: 20111013
  Transmission Date: 20120403
  Serious: Yes (Hospitalization)
  Sender: FDA-Public Use
  Company Number: IT-TEVA-305221ISR

PATIENT
  Sex: Male

DRUGS (2)
  1. FLUOROURACIL [Suspect]
     Dosage: 4270 MILLIGRAM;
     Route: 041
     Dates: start: 20110721, end: 20110723
  2. FLUOROURACIL [Suspect]
     Indication: RECTAL CANCER
     Dosage: 710 MILLIGRAM;
     Route: 040
     Dates: start: 20110721

REACTIONS (4)
  - HYPERBILIRUBINAEMIA [None]
  - MUCOSAL INFLAMMATION [None]
  - PANCYTOPENIA [None]
  - PYREXIA [None]
